FAERS Safety Report 23726802 (Version 2)
Quarter: 2024Q4

REPORT INFORMATION
  Report Type: Spontaneous
  Country: IN (occurrence: IN)
  Receive Date: 20240410
  Receipt Date: 20241218
  Transmission Date: 20250115
  Serious: Yes (Other)
  Sender: TAKEDA
  Company Number: IN-TAKEDA-2020TUS039170

PATIENT
  Sex: Female

DRUGS (2)
  1. ICLUSIG [Suspect]
     Active Substance: PONATINIB HYDROCHLORIDE
     Indication: Chronic myeloid leukaemia
     Dosage: 30 MILLIGRAM
  2. ICLUSIG [Suspect]
     Active Substance: PONATINIB HYDROCHLORIDE
     Dosage: 15 MILLIGRAM

REACTIONS (4)
  - Chronic myeloid leukaemia [Unknown]
  - Gangrene [Unknown]
  - Peripheral artery thrombosis [Unknown]
  - SARS-CoV-2 test positive [Unknown]
